FAERS Safety Report 9165358 (Version 1)
Quarter: 2013Q1

REPORT INFORMATION
  Report Type: Spontaneous
  Country: US (occurrence: US)
  Receive Date: 20130315
  Receipt Date: 20130315
  Transmission Date: 20140127
  Serious: Yes (Hospitalization)
  Sender: FDA-Public Use
  Company Number: PHEH2013US005980

PATIENT
  Sex: Female

DRUGS (1)
  1. SANDIMMUNE NEORAL [Suspect]
     Dosage: 150 MG, TOTAL DOSE
     Route: 048

REACTIONS (3)
  - Sepsis [Unknown]
  - Cellulitis [Unknown]
  - Vitamin D deficiency [Unknown]
